FAERS Safety Report 24018779 (Version 1)
Quarter: 2024Q2

REPORT INFORMATION
  Report Type: Spontaneous
  Country: US (occurrence: None)
  Receive Date: 20240626
  Receipt Date: 20240626
  Transmission Date: 20240716
  Serious: No
  Sender: FDA-Public Use
  Company Number: None

PATIENT
  Age: 17 Year
  Sex: Female
  Weight: 126 kg

DRUGS (1)
  1. HYQVIA [Suspect]
     Active Substance: HUMAN IMMUNOGLOBULIN G\HYALURONIDASE (HUMAN RECOMBINANT)
     Indication: Immunodeficiency common variable
     Dosage: FREQUENCY : MONTHLY;?
     Route: 058
     Dates: start: 20240613, end: 20240613

REACTIONS (2)
  - Menstruation irregular [None]
  - Menstrual disorder [None]

NARRATIVE: CASE EVENT DATE: 20240626
